FAERS Safety Report 5925392-3 (Version None)
Quarter: 2008Q4

REPORT INFORMATION
  Report Type: 
  Country: None (occurrence: None)
  Receive Date: 20081021
  Receipt Date: 20081010
  Transmission Date: 20090506
  Serious: Yes (Other)
  Sender: FDA-Public Use
  Company Number: ES-ELI_LILLY_AND_COMPANY-ES200810002349

PATIENT
  Age: 45 Year
  Sex: Female

DRUGS (3)
  1. CYMBALTA [Suspect]
     Indication: AFFECTIVE DISORDER
     Dosage: 60 MG, UNKNOWN
     Route: 048
     Dates: start: 20070301, end: 20080325
  2. CYMBALTA [Suspect]
     Dosage: 90 MG, UNKNOWN
     Route: 048
     Dates: start: 20080325
  3. LORAZEPAM [Concomitant]
     Dosage: 2 MG, UNKNOWN
     Route: 048

REACTIONS (7)
  - AFFECTIVE DISORDER [None]
  - GLUCOSE TOLERANCE IMPAIRED [None]
  - HYPERCORTICOIDISM [None]
  - HYPERTENSION [None]
  - MICROCYTIC ANAEMIA [None]
  - PLATELET COUNT INCREASED [None]
  - WEIGHT INCREASED [None]
